FAERS Safety Report 14284433 (Version 1)
Quarter: 2017Q4

REPORT INFORMATION
  Report Type: Report from Study
  Country: GB (occurrence: GB)
  Receive Date: 20171214
  Receipt Date: 20171214
  Transmission Date: 20180321
  Serious: Yes (Death)
  Sender: FDA-Public Use
  Company Number: GB-CIPLA LTD.-2017GB22656

PATIENT

DRUGS (3)
  1. PRAZIQUANTEL [Suspect]
     Active Substance: PRAZIQUANTEL
     Indication: MALARIA PROPHYLAXIS
     Dosage: 1500-2400 MG ACCORDING TO HEIGHT), SINGLE
     Route: 065
  2. FOLIC ACID. [Suspect]
     Active Substance: FOLIC ACID
     Indication: SUPPLEMENTATION THERAPY
     Dosage: 2.8 MG, UNK
     Route: 065
  3. ALBENDAZOLE [Suspect]
     Active Substance: ALBENDAZOLE
     Indication: ANTIFUNGAL PROPHYLAXIS
     Dosage: 400 MG, SINGLE
     Route: 065

REACTIONS (1)
  - Death [Fatal]
